FAERS Safety Report 11568205 (Version 2)
Quarter: 2015Q4

REPORT INFORMATION
  Report Type: Spontaneous
  Country: US (occurrence: US)
  Receive Date: 20150929
  Receipt Date: 20151223
  Transmission Date: 20160304
  Serious: Yes (Hospitalization)
  Sender: FDA-Public Use
  Company Number: US-BAYER-2015-432407

PATIENT
  Age: 26 Year
  Sex: Female
  Weight: 68.27 kg

DRUGS (3)
  1. MIRENA [Suspect]
     Active Substance: LEVONORGESTREL
     Indication: CONTRACEPTION
     Dosage: 20 MCG/24HR, CONT
     Route: 015
     Dates: start: 20060811, end: 20070622
  2. LEXAPRO [Concomitant]
     Active Substance: ESCITALOPRAM OXALATE
     Indication: ANXIETY
     Dosage: UNK
     Dates: start: 200610, end: 2013
  3. BUTALBITAL, ACETAMINOPHEN, AND CAFFEINE [Concomitant]
     Active Substance: ACETAMINOPHEN\BUTALBITAL\CAFFEINE
     Indication: MIGRAINE
     Dosage: UNK
     Dates: start: 200601, end: 201407

REACTIONS (16)
  - Procedural pain [None]
  - Impaired work ability [None]
  - Hypokinesia [None]
  - Anxiety [None]
  - Device dislocation [Not Recovered/Not Resolved]
  - Stress [None]
  - Device use error [None]
  - Cystitis interstitial [None]
  - Procedural pain [None]
  - Device difficult to use [None]
  - Injury [Not Recovered/Not Resolved]
  - Pelvic pain [Not Recovered/Not Resolved]
  - Device failure [None]
  - Peripheral nerve injury [None]
  - Genital haemorrhage [None]
  - Emotional distress [None]

NARRATIVE: CASE EVENT DATE: 20060811
